FAERS Safety Report 7651034-5 (Version None)
Quarter: 2011Q3

REPORT INFORMATION
  Report Type: 
  Country: None (occurrence: None)
  Receive Date: 20110802
  Receipt Date: 20110720
  Transmission Date: 20111222
  Serious: Yes (Other)
  Sender: FDA-Public Use
  Company Number: US-ASTRAZENECA-2008UW25905

PATIENT
  Age: 39 Year
  Sex: Female
  Weight: 115.2 kg

DRUGS (12)
  1. SEROQUEL [Suspect]
     Indication: ANXIETY
     Dosage: 150 TO 200 MG
     Route: 048
     Dates: start: 20061127
  2. EFFEXOR/EFFEXOR XR [Concomitant]
     Dosage: 450 AND 150 MG
     Dates: start: 20050101
  3. CLONAZEPAM [Concomitant]
     Route: 048
     Dates: start: 20061127
  4. ABILIFY [Concomitant]
     Dates: start: 20040101
  5. LITHIUM/LITHIUM CARBONATE ER [Concomitant]
     Dates: start: 20050101
  6. LITHIUM/LITHIUM CARBONATE ER [Concomitant]
     Route: 048
     Dates: start: 20061127
  7. NAVANE [Concomitant]
     Dates: start: 20030101
  8. SEROQUEL [Suspect]
     Indication: BIPOLAR DISORDER
     Dosage: 150 TO 200 MG
     Route: 048
     Dates: start: 20061127
  9. SEROQUEL [Suspect]
     Indication: DEPRESSION
     Dosage: 150 TO 200 MG
     Route: 048
     Dates: start: 20061127
  10. EFFEXOR/EFFEXOR XR [Concomitant]
     Dates: start: 20061127
  11. RTC [Concomitant]
     Route: 048
     Dates: start: 20061127
  12. TRAZODONE HCL [Concomitant]
     Dates: end: 20061127

REACTIONS (7)
  - TYPE 2 DIABETES MELLITUS [None]
  - OBESITY [None]
  - ASTHMA [None]
  - PARAESTHESIA [None]
  - GALLBLADDER DISORDER [None]
  - NEUROPATHY PERIPHERAL [None]
  - HYPOAESTHESIA [None]
